FAERS Safety Report 23121881 (Version 1)
Quarter: 2023Q4

REPORT INFORMATION
  Report Type: Spontaneous
  Country: CN (occurrence: CN)
  Receive Date: 20231030
  Receipt Date: 20231030
  Transmission Date: 20240109
  Serious: Yes (Hospitalization)
  Sender: FDA-Public Use
  Company Number: CN-ABBVIE-5467636

PATIENT
  Age: 72 Year
  Sex: Male
  Weight: 52 kg

DRUGS (4)
  1. VENETOCLAX [Suspect]
     Active Substance: VENETOCLAX
     Indication: Neoplasm malignant
     Dosage: 100 MILLIGRAM
     Route: 050
     Dates: start: 20231007, end: 20231007
  2. VENETOCLAX [Suspect]
     Active Substance: VENETOCLAX
     Indication: Neoplasm malignant
     Dosage: 400 MILLIGRAM
     Route: 050
     Dates: start: 20231009, end: 20231014
  3. VENETOCLAX [Suspect]
     Active Substance: VENETOCLAX
     Indication: Neoplasm malignant
     Dosage: 200 MILLIGRAM
     Route: 050
     Dates: start: 20231008, end: 20231008
  4. DECITABINE [Suspect]
     Active Substance: DECITABINE
     Indication: Neoplasm malignant
     Dosage: 25 MILLIGRAM
     Route: 065
     Dates: start: 20231005, end: 20231009

REACTIONS (1)
  - Myelosuppression [Unknown]

NARRATIVE: CASE EVENT DATE: 20231014
